FAERS Safety Report 15286743 (Version 1)
Quarter: 2018Q3

REPORT INFORMATION
  Report Type: Spontaneous
  Country: US (occurrence: US)
  Receive Date: 20180816
  Receipt Date: 20180816
  Transmission Date: 20181010
  Serious: No
  Sender: FDA-Public Use
  Company Number: US-AMGEN-USASP2018095917

PATIENT
  Age: 61 Year
  Sex: Male

DRUGS (7)
  1. PARSABIV [Suspect]
     Active Substance: ETELCALCETIDE HYDROCHLORIDE
     Dosage: 15 MG, UNK
     Route: 065
     Dates: start: 20180618, end: 20180628
  2. PARSABIV [Suspect]
     Active Substance: ETELCALCETIDE HYDROCHLORIDE
     Indication: PRODUCT USED FOR UNKNOWN INDICATION
     Dosage: 5 MG, UNK
     Route: 065
     Dates: start: 20180108
  3. PARSABIV [Suspect]
     Active Substance: ETELCALCETIDE HYDROCHLORIDE
     Dosage: 10 MG, UNK
     Route: 065
     Dates: start: 20180423
  4. CALCITRIOL. [Concomitant]
     Active Substance: CALCITRIOL
     Dosage: 1 MUG, UNK
     Route: 042
  5. ERGOCALCIFEROL. [Concomitant]
     Active Substance: ERGOCALCIFEROL
     Dosage: 1 MUG, UNK
     Route: 042
     Dates: start: 20180329, end: 20180423
  6. CALCITRIOL. [Concomitant]
     Active Substance: CALCITRIOL
     Dosage: 2 MUG, UNK
     Route: 042
     Dates: start: 20180618
  7. PARSABIV [Suspect]
     Active Substance: ETELCALCETIDE HYDROCHLORIDE
     Dosage: 7.5 MG, UNK
     Route: 065
     Dates: start: 20180221

REACTIONS (1)
  - Hypocalcaemia [Recovered/Resolved]

NARRATIVE: CASE EVENT DATE: 20180108
